FAERS Safety Report 9886951 (Version 2)
Quarter: 2014Q1

REPORT INFORMATION
  Report Type: Report from Study
  Country: DE (occurrence: DE)
  Receive Date: 20140211
  Receipt Date: 20140211
  Transmission Date: 20141002
  Serious: Yes (Hospitalization)
  Sender: FDA-Public Use
  Company Number: DE-ROCHE-1235599

PATIENT
  Age: 54 Year
  Sex: Female
  Weight: 74 kg

DRUGS (28)
  1. BEVACIZUMAB [Suspect]
     Indication: BREAST CANCER METASTATIC
     Route: 042
     Dates: start: 20120918, end: 20120918
  2. BEVACIZUMAB [Suspect]
     Route: 042
     Dates: start: 20130405, end: 20130405
  3. BEVACIZUMAB [Suspect]
     Route: 042
     Dates: start: 20130108, end: 20130108
  4. TARGIN [Concomitant]
     Dosage: 10/5 MG
     Route: 048
     Dates: start: 20130513
  5. DENOSUMAB [Concomitant]
     Indication: BREAST CANCER
     Route: 058
     Dates: start: 20120918, end: 20130419
  6. DENOSUMAB [Concomitant]
     Route: 065
     Dates: start: 20130315
  7. DENOSUMAB [Concomitant]
     Route: 065
     Dates: start: 20130322
  8. PACLITAXEL [Concomitant]
     Indication: BREAST CANCER METASTATIC
     Route: 042
     Dates: start: 20120918, end: 20130419
  9. PACLITAXEL [Concomitant]
     Route: 042
     Dates: start: 20120925
  10. PACLITAXEL [Concomitant]
     Route: 042
     Dates: start: 20121002
  11. PACLITAXEL [Concomitant]
     Route: 042
     Dates: start: 20121009
  12. PACLITAXEL [Concomitant]
     Route: 042
     Dates: start: 20121206
  13. PACLITAXEL [Concomitant]
     Route: 042
     Dates: start: 20121213
  14. PACLITAXEL [Concomitant]
     Route: 042
     Dates: start: 20121220
  15. PACLITAXEL [Concomitant]
     Route: 042
     Dates: start: 20130108
  16. PACLITAXEL [Concomitant]
     Route: 042
     Dates: start: 20130115
  17. PACLITAXEL [Concomitant]
     Route: 042
     Dates: start: 20130130
  18. PACLITAXEL [Concomitant]
     Route: 042
     Dates: start: 20130206
  19. PACLITAXEL [Concomitant]
     Route: 042
     Dates: start: 20130213
  20. PACLITAXEL [Concomitant]
     Route: 042
     Dates: start: 20130220
  21. PACLITAXEL [Concomitant]
     Route: 042
     Dates: start: 20130227
  22. PACLITAXEL [Concomitant]
     Route: 042
     Dates: start: 20130306
  23. PACLITAXEL [Concomitant]
     Route: 042
     Dates: start: 20130315
  24. PACLITAXEL [Concomitant]
     Route: 042
     Dates: start: 20130322
  25. PACLITAXEL [Concomitant]
     Route: 042
     Dates: start: 20130405
  26. PACLITAXEL [Concomitant]
     Route: 042
     Dates: start: 20130412
  27. PACLITAXEL [Concomitant]
     Route: 042
     Dates: start: 20130419
  28. AMOCLAV [Concomitant]
     Indication: PYREXIA
     Dosage: DAILY
     Route: 042
     Dates: start: 20130118, end: 20130122

REACTIONS (4)
  - Femoral neck fracture [Recovered/Resolved]
  - Pyrexia [Recovered/Resolved]
  - C-reactive protein increased [Recovered/Resolved]
  - General physical health deterioration [Recovered/Resolved]
